FAERS Safety Report 10430649 (Version 2)
Quarter: 2014Q3

REPORT INFORMATION
  Report Type: Spontaneous
  Country: US (occurrence: US)
  Receive Date: 20140904
  Receipt Date: 20140929
  Transmission Date: 20150326
  Serious: No
  Sender: FDA-Public Use
  Company Number: US-PFIZER INC-2014245237

PATIENT
  Sex: Female

DRUGS (3)
  1. LYRICA [Suspect]
     Active Substance: PREGABALIN
     Indication: DIABETIC NEUROPATHY
     Dosage: 150 MG, 2X/DAY (TWO CAPSULES OF 75MG)
     Route: 048
     Dates: start: 2009, end: 20140826
  2. CRESTOR [Concomitant]
     Active Substance: ROSUVASTATIN CALCIUM
     Indication: HYPERTENSION
     Dosage: UNK
  3. LYRICA [Suspect]
     Active Substance: PREGABALIN
     Indication: FIBROMYALGIA
     Dosage: 75 MG, 4X/DAY

REACTIONS (6)
  - Tremor [Unknown]
  - Drug withdrawal syndrome [Unknown]
  - Body temperature increased [Unknown]
  - Chills [Unknown]
  - Cold sweat [Unknown]
  - Nausea [Unknown]

NARRATIVE: CASE EVENT DATE: 2014
